FAERS Safety Report 4930609-8 (Version None)
Quarter: 2006Q1

REPORT INFORMATION
  Report Type: 
  Country: None (occurrence: None)
  Receive Date: 20060302
  Receipt Date: 20051025
  Transmission Date: 20060701
  Serious: Yes (Hospitalization, Disabling)
  Sender: FDA-Public Use
  Company Number: US-MERCK-0510USA09017

PATIENT
  Age: 76 Year
  Sex: Male
  Weight: 77 kg

DRUGS (21)
  1. VIOXX [Suspect]
     Indication: OSTEOARTHRITIS
     Route: 048
     Dates: start: 20010901, end: 20040930
  2. PREVACID [Concomitant]
     Route: 065
  3. INDERAL [Concomitant]
     Indication: HYPERTENSION
     Route: 065
     Dates: start: 19950101, end: 20040101
  4. INDERAL [Concomitant]
     Route: 065
     Dates: start: 19950101, end: 20040101
  5. AVANDIA [Concomitant]
     Indication: DIABETES MELLITUS NON-INSULIN-DEPENDENT
     Route: 065
  6. LIPITOR [Concomitant]
     Indication: BLOOD CHOLESTEROL INCREASED
     Route: 065
     Dates: start: 19930101
  7. TYLENOL (CAPLET) [Concomitant]
     Indication: PAIN
     Route: 065
     Dates: start: 19700101
  8. PLAVIX [Concomitant]
     Indication: SUPRAVENTRICULAR TACHYCARDIA
     Route: 065
     Dates: start: 20000101
  9. ACIPHEX [Concomitant]
     Route: 065
  10. ZOCOR [Concomitant]
     Route: 065
  11. DOCUSATE SODIUM [Concomitant]
     Route: 065
  12. RANITIDINE [Concomitant]
     Route: 065
  13. SENNA [Concomitant]
     Route: 065
  14. FLEXERIL [Concomitant]
     Route: 065
  15. NITROGLYCERIN [Concomitant]
     Route: 065
  16. IMDUR [Concomitant]
     Route: 065
  17. MIRALAX [Concomitant]
     Route: 065
  18. TIAZAC [Concomitant]
     Route: 065
  19. ACTOS [Concomitant]
     Route: 065
  20. ASPIRIN [Concomitant]
     Route: 065
  21. PROTONIX [Concomitant]
     Route: 065

REACTIONS (16)
  - APPENDICITIS [None]
  - BACK PAIN [None]
  - BRONCHITIS [None]
  - CEREBROVASCULAR ACCIDENT [None]
  - CHEST PAIN [None]
  - DEPRESSION [None]
  - DIABETIC MICROANGIOPATHY [None]
  - DIZZINESS [None]
  - DYSPNOEA [None]
  - FALL [None]
  - GAIT DISTURBANCE [None]
  - HAEMORRHOIDS [None]
  - IRRITABLE BOWEL SYNDROME [None]
  - PAIN [None]
  - RASH [None]
  - SOFT TISSUE INJURY [None]
